FAERS Safety Report 11801510 (Version 1)
Quarter: 2015Q4

REPORT INFORMATION
  Report Type: Spontaneous
  Country: IT (occurrence: IT)
  Receive Date: 20151204
  Receipt Date: 20151204
  Transmission Date: 20160305
  Serious: Yes (Other)
  Sender: FDA-Public Use
  Company Number: IT-SUN PHARMACEUTICAL INDUSTRIES LTD-2015RR-107052

PATIENT

DRUGS (4)
  1. FOLINIC ACID [Concomitant]
     Active Substance: LEUCOVORIN
     Indication: PRODUCT USED FOR UNKNOWN INDICATION
     Dosage: 400 MG
     Route: 042
     Dates: start: 20150323, end: 20151112
  2. FLUOROURACIL. [Suspect]
     Active Substance: FLUOROURACIL
     Indication: PANCREATIC CARCINOMA
     Dosage: 3800 MG CYCLICAL
     Route: 042
     Dates: start: 20150309, end: 20150707
  3. OXALIPLATINO SUN 5 MG/ML, CONCENTRATO PER SOLUZIONE PER INFUSIONE [Suspect]
     Active Substance: OXALIPLATIN
     Indication: PANCREATIC CARCINOMA
     Dosage: 150 MG CYCLICAL
     Route: 042
     Dates: start: 20150309, end: 20150707
  4. IRINOTECAN [Suspect]
     Active Substance: IRINOTECAN
     Indication: PANCREATIC CARCINOMA
     Dosage: 300 MG CYCLICAL
     Route: 042
     Dates: start: 20150309, end: 20150707

REACTIONS (2)
  - Neutropenia [Unknown]
  - Thrombocytopenia [Unknown]

NARRATIVE: CASE EVENT DATE: 20150707
